FAERS Safety Report 19812351 (Version 2)
Quarter: 2022Q4

REPORT INFORMATION
  Report Type: Spontaneous
  Country: JP (occurrence: JP)
  Receive Date: 20210909
  Receipt Date: 20221214
  Transmission Date: 20230113
  Serious: Yes (Death, Life-Threatening, Other)
  Sender: FDA-Public Use
  Company Number: JP-MLMSERVICE-20210825-3065854-1

PATIENT
  Age: 63 Year
  Sex: Male
  Weight: 46 kg

DRUGS (10)
  1. ROPINIROLE [Suspect]
     Active Substance: ROPINIROLE
     Indication: Product used for unknown indication
     Route: 048
  2. ENTACAPONE [Concomitant]
     Active Substance: ENTACAPONE
     Route: 048
  3. MAGNESIUM OXIDE [Concomitant]
     Active Substance: MAGNESIUM OXIDE
     Route: 048
  4. AMANTADINE [Concomitant]
     Active Substance: AMANTADINE
     Route: 048
  5. SILODOSIN [Concomitant]
     Active Substance: SILODOSIN
     Route: 048
  6. NITRAZEPAM [Concomitant]
     Active Substance: NITRAZEPAM
     Route: 048
  7. TOCOPHEROL ACETATE [Concomitant]
     Active Substance: .ALPHA.-TOCOPHEROL ACETATE
     Route: 048
  8. DUTASTERIDE [Concomitant]
     Active Substance: DUTASTERIDE
     Route: 048
  9. LEVODOPA [Concomitant]
     Active Substance: LEVODOPA
     Route: 048
  10. ZONISAMIDE [Concomitant]
     Active Substance: ZONISAMIDE
     Route: 048

REACTIONS (6)
  - Toxicity to various agents [Fatal]
  - Benign prostatic hyperplasia [Fatal]
  - Shock [Fatal]
  - Arrhythmia [Fatal]
  - Cerebral haematoma [Fatal]
  - Cerebral haemorrhage [Fatal]
